FAERS Safety Report 5353476-X (Version None)
Quarter: 2007Q2

REPORT INFORMATION
  Report Type: 
  Country: None (occurrence: None)
  Receive Date: 20070612
  Receipt Date: 20070606
  Transmission Date: 20071010
  Serious: Yes (Other)
  Sender: FDA-Public Use
  Company Number: PHEH2007US08472

PATIENT
  Age: 77 Year
  Sex: Male
  Weight: 80.725 kg

DRUGS (17)
  1. ZOLEDRONATE [Suspect]
     Indication: METASTASES TO BONE
     Dosage: 4MG, Q 3 WEEKS
     Route: 042
     Dates: start: 20040413, end: 20050104
  2. ZOLEDRONATE [Suspect]
     Dosage: 4 MG, ONCE/SINGLE
     Dates: start: 20050615, end: 20050615
  3. BENADRYL [Concomitant]
     Dosage: UNK, UNK
  4. DECADRON #1 [Concomitant]
     Dosage: UNK, UNK
  5. ZANTAC [Concomitant]
     Dosage: UNK, UNK
  6. ZOFRAN [Concomitant]
     Dosage: UNK, UNK
  7. TAXOL [Concomitant]
     Dosage: UNK, UNK
  8. PROCRIT [Concomitant]
     Dosage: UNK, UNK
  9. LEUKINE [Concomitant]
     Dosage: UNK, UNK
  10. KYTRIL [Concomitant]
     Dosage: UNK, UNK
  11. ROCEPHIN [Concomitant]
     Dosage: UNK, UNK
  12. ALIMTA [Concomitant]
     Dosage: UNK, UNK
  13. ALOXI [Concomitant]
     Dosage: UNK, UNK
  14. GEMZAR [Concomitant]
     Dosage: UNK, UNK
  15. CISPLATIN [Concomitant]
     Dosage: UNK, UNK
  16. AVASTIN [Concomitant]
     Dosage: UNK, UNK
  17. TARCEVA [Concomitant]
     Dosage: UNK, UNK

REACTIONS (3)
  - MOUTH ULCERATION [None]
  - ORAL PAIN [None]
  - OSTEONECROSIS [None]
